FAERS Safety Report 5137049-X (Version None)
Quarter: 2006Q4

REPORT INFORMATION
  Report Type: 
  Country: None (occurrence: None)
  Receive Date: 20061024
  Receipt Date: 20061024
  Transmission Date: 20070319
  Serious: No
  Sender: FDA-Public Use
  Company Number: None

PATIENT
  Age: 62 Year
  Sex: Female

DRUGS (14)
  1. DOXYCYCLINE [Suspect]
     Dates: start: 20050526, end: 20050604
  2. PREMARIN [Concomitant]
  3. CLARINEX [Concomitant]
  4. ASPIRIN [Concomitant]
  5. HYDROCHLOROTHIAZIDE [Concomitant]
  6. LIPITOR [Concomitant]
  7. GLUCOPHAGE [Concomitant]
  8. VICODIN [Concomitant]
  9. OXYCODONE HCL [Concomitant]
  10. POTASSIUM ACETATE [Concomitant]
  11. MAGNESIUM [Concomitant]
  12. GLUCOSAMINE [Concomitant]
  13. CALCIUM [Concomitant]
  14. MULTI-VITAMIN [Concomitant]

REACTIONS (9)
  - ANOREXIA [None]
  - ANTINUCLEAR ANTIBODY POSITIVE [None]
  - ASTHENIA [None]
  - BLOOD GLUCOSE INCREASED [None]
  - FATIGUE [None]
  - HEPATIC NECROSIS [None]
  - HEPATIC TRAUMA [None]
  - HEPATITIS ACUTE [None]
  - MALAISE [None]
